FAERS Safety Report 11170556 (Version 3)
Quarter: 2015Q4

REPORT INFORMATION
  Report Type: Report from Study
  Country: BR (occurrence: BR)
  Receive Date: 20150608
  Receipt Date: 20151204
  Transmission Date: 20160304
  Serious: Yes (Hospitalization)
  Sender: FDA-Public Use
  Company Number: BR-BIOGENIDEC-2015BI076878

PATIENT
  Age: 41 Year
  Sex: Female

DRUGS (13)
  1. NEVRALGEX (METAMIZOLE ORPHENADRINE) [Concomitant]
     Indication: PAIN IN EXTREMITY
     Dates: start: 201501
  2. SERTRALINE [Concomitant]
     Active Substance: SERTRALINE HYDROCHLORIDE
     Dates: start: 20150401
  3. HUMALOG [Concomitant]
     Active Substance: INSULIN LISPRO
     Indication: DIABETES MELLITUS
  4. NITROFURANTOIN. [Concomitant]
     Active Substance: NITROFURANTOIN
     Indication: PROPHYLAXIS URINARY TRACT INFECTION
  5. KETOROLAC [Concomitant]
     Active Substance: KETOROLAC\KETOROLAC TROMETHAMINE
     Indication: PAIN IN EXTREMITY
     Route: 060
  6. CARBAMAZEPINE. [Concomitant]
     Active Substance: CARBAMAZEPINE
     Indication: MUSCLE SPASMS
     Dates: start: 201408
  7. LANTUS [Concomitant]
     Active Substance: INSULIN GLARGINE
  8. VENLAFAXINE [Concomitant]
     Active Substance: VENLAFAXINE HYDROCHLORIDE
     Indication: DIABETES MELLITUS
  9. BACLOFEN. [Concomitant]
     Active Substance: BACLOFEN
     Dates: start: 2010
  10. TYSABRI [Suspect]
     Active Substance: NATALIZUMAB
     Indication: MULTIPLE SCLEROSIS
     Route: 042
     Dates: start: 20120418
  11. CITALOPRAM [Concomitant]
     Active Substance: CITALOPRAM HYDROBROMIDE
     Dates: start: 2010
  12. TYSABRI [Suspect]
     Active Substance: NATALIZUMAB
     Indication: MULTIPLE SCLEROSIS
     Route: 042
     Dates: start: 201409
  13. XARELTO [Concomitant]
     Active Substance: RIVAROXABAN

REACTIONS (8)
  - Nuclear magnetic resonance imaging abnormal [Unknown]
  - Pain [Not Recovered/Not Resolved]
  - Abasia [Not Recovered/Not Resolved]
  - Hypersensitivity [Unknown]
  - Thrombosis [Recovered/Resolved]
  - Bladder catheterisation [Not Recovered/Not Resolved]
  - Neuropathy peripheral [Unknown]
  - Speech disorder [Not Recovered/Not Resolved]

NARRATIVE: CASE EVENT DATE: 2013
